FAERS Safety Report 25045745 (Version 10)
Quarter: 2025Q3

REPORT INFORMATION
  Report Type: Spontaneous
  Country: US (occurrence: US)
  Receive Date: 20250306
  Receipt Date: 20250902
  Transmission Date: 20251020
  Serious: No
  Sender: DAIICHI
  Company Number: US-DAIICHI SANKYO, INC.-DS-2025-128840-USAA

PATIENT
  Age: 31 Year
  Sex: Female

DRUGS (2)
  1. TURALIO [Suspect]
     Active Substance: PEXIDARTINIB HYDROCHLORIDE
     Indication: Neoplasm
     Dosage: 125 MG, BID (2 CAPSULES BY MOUTH TWICE DAILY (AM + PM)
     Route: 048
     Dates: start: 20250219, end: 20250611
  2. TURALIO [Suspect]
     Active Substance: PEXIDARTINIB HYDROCHLORIDE
     Indication: Giant cell tumour of tendon sheath
     Dosage: 250 MG, BID (TWICE DAILY)
     Route: 048
     Dates: start: 20250219, end: 20250611

REACTIONS (13)
  - Blood albumin increased [Recovered/Resolved]
  - Contusion [Recovered/Resolved]
  - Dehydration [Recovered/Resolved]
  - Pain [Not Recovered/Not Resolved]
  - Fatigue [Recovering/Resolving]
  - Hair colour changes [Recovered/Resolved]
  - Swelling of eyelid [Not Recovered/Not Resolved]
  - Swelling face [Not Recovered/Not Resolved]
  - Hair colour changes [Unknown]
  - Swelling face [Not Recovered/Not Resolved]
  - Product dose omission issue [Recovered/Resolved]
  - Product dose omission issue [Recovered/Resolved]
  - Product dose omission issue [Not Recovered/Not Resolved]

NARRATIVE: CASE EVENT DATE: 20250301
